FAERS Safety Report 10373707 (Version 1)
Quarter: 2014Q1

REPORT INFORMATION
  Report Type: Spontaneous
  Country: US (occurrence: None)
  Receive Date: 20140306
  Receipt Date: 20140306
  Transmission Date: 20141002
  Serious: Yes (Hospitalization, Other)
  Sender: FDA-Public Use
  Company Number: 163-21880-13013536

PATIENT
  Age: 60 Year
  Sex: Female

DRUGS (27)
  1. REVLIMID [Suspect]
     Indication: PLASMA CELL MYELOMA
     Dosage: 10 MG, 21 IN 28 D, PO
     Route: 048
     Dates: start: 20090722
  2. ACYCLOVIR (ACICLOVIR) (TABLETS) [Concomitant]
  3. FENTANYL [Concomitant]
  4. FISH OIL [Concomitant]
  5. GLUCOSAMINE / CHONDROITIN (JORIX) [Concomitant]
  6. HYDROCORTISONE [Concomitant]
  7. IMODIUM AD (LOPERAMIDE HYDROCHLORIDE) [Concomitant]
  8. LEVOFLOXACIN [Concomitant]
  9. METAMUCIL (METAMUCIL ^PROCTER + GAMBLE^ ) [Concomitant]
  10. NITROFURANTOIN [Concomitant]
  11. DETROL LA (TOLTERODINE L-TARTRATE) (CAPSULES) [Concomitant]
  12. CYCLOBENZAPRINE (CAPSULES) [Concomitant]
  13. PERCOCET (OXYCOCET) (TABLETS) [Concomitant]
  14. PRAVASTATIN SODIUM [Concomitant]
  15. VITAMIN B12 (CYANOCOBALAMIN) [Concomitant]
  16. VENLAFAXINE HCL (CENLAFAXINE HYDROCHLORIDE) [Concomitant]
  17. PROMETHAZINE HCL (PROMETHAZINE HYDROCHLORIDE) [Concomitant]
  18. VITAMIN D (ERGOCALCIFEROL) [Concomitant]
  19. INDERAL (PROPRANOLOL HYDROCHLORIDE) [Concomitant]
  20. PREMARIN (ESTROGENS CONJUGATED) [Concomitant]
  21. XANAX (ALPRAZOLAM) [Concomitant]
  22. VELCADE (BORTEZOMIB) [Concomitant]
  23. PREVIDENT BOOSTER (SODIUM FLUORIDE) [Concomitant]
  24. OXYCONTIN (OXYCODONE HYDROCHLORIDE) [Concomitant]
  25. ASPIRINE (ACETYLSALICYLIC ACID) [Concomitant]
  26. NITROFURANTOIN MONOHYDRATE [Concomitant]
  27. FLEXERIL (CYCLOBENZAPRINE HYDROCHLORIDE) [Concomitant]

REACTIONS (5)
  - Deep vein thrombosis [None]
  - Thrombosis [None]
  - Fatigue [None]
  - Cystitis [None]
  - Urinary tract infection [None]
